FAERS Safety Report 20554726 (Version 2)
Quarter: 2022Q1

REPORT INFORMATION
  Report Type: Report from Study
  Country: US (occurrence: US)
  Receive Date: 20220304
  Receipt Date: 20220317
  Transmission Date: 20220423
  Serious: Yes (Other)
  Sender: FDA-Public Use
  Company Number: US-ABBVIE-22K-163-4283679-00

PATIENT
  Sex: Female

DRUGS (1)
  1. ORILISSA [Suspect]
     Active Substance: ELAGOLIX SODIUM
     Indication: Endometriosis
     Route: 065
     Dates: start: 20220131

REACTIONS (10)
  - Loss of consciousness [Not Recovered/Not Resolved]
  - Fatigue [Not Recovered/Not Resolved]
  - Dry mouth [Not Recovered/Not Resolved]
  - Migraine [Not Recovered/Not Resolved]
  - Premenstrual syndrome [Not Recovered/Not Resolved]
  - Fibromyalgia [Recovered/Resolved]
  - Vomiting [Not Recovered/Not Resolved]
  - Nausea [Not Recovered/Not Resolved]
  - Headache [Not Recovered/Not Resolved]
  - Endometriosis [Not Recovered/Not Resolved]

NARRATIVE: CASE EVENT DATE: 20220101
